FAERS Safety Report 24812337 (Version 1)
Quarter: 2025Q1

REPORT INFORMATION
  Report Type: Spontaneous
  Country: US (occurrence: US)
  Receive Date: 20250106
  Receipt Date: 20250106
  Transmission Date: 20250408
  Serious: No
  Sender: BAUSCH AND LOMB
  Company Number: US-BAUSCHBL-2024BNL039572

PATIENT
  Age: 64 Year
  Sex: Male
  Weight: 90 kg

DRUGS (5)
  1. LUMIFY [Suspect]
     Active Substance: BRIMONIDINE TARTRATE
     Indication: Ocular hyperaemia
     Route: 047
     Dates: end: 202412
  2. LUMIFY [Suspect]
     Active Substance: BRIMONIDINE TARTRATE
  3. PATADAY [Concomitant]
     Active Substance: OLOPATADINE HYDROCHLORIDE
     Indication: Product used for unknown indication
     Route: 065
  4. REFRESH OPTIVE [Concomitant]
     Active Substance: CARBOXYMETHYLCELLULOSE SODIUM\GLYCERIN
     Indication: Product used for unknown indication
     Route: 065
  5. BIOTRUE [Concomitant]
     Indication: Product used for unknown indication

REACTIONS (5)
  - Ocular hyperaemia [Unknown]
  - Dry eye [Unknown]
  - Eye irritation [Unknown]
  - Product availability issue [Unknown]
  - Intentional product use issue [Unknown]
